FAERS Safety Report 9575078 (Version 1)
Quarter: 2013Q4

REPORT INFORMATION
  Report Type: Spontaneous
  Country: GB (occurrence: GB)
  Receive Date: 20131001
  Receipt Date: 20131001
  Transmission Date: 20140711
  Serious: Yes (Hospitalization)
  Sender: FDA-Public Use
  Company Number: PHHY2013GB106193

PATIENT
  Age: 75 Year
  Sex: Male

DRUGS (7)
  1. PIOGLITAZONE [Suspect]
     Indication: DIABETES MELLITUS
     Dates: end: 20121218
  2. ADENURIC [Suspect]
     Indication: URATE NEPHROPATHY
     Route: 048
     Dates: start: 20120903, end: 20121014
  3. COLCHICINE [Concomitant]
     Dosage: 500 UG, UNK
  4. MAXITROL [Concomitant]
  5. ARANESP [Concomitant]
     Dosage: UNK UKN, UNK, 60 MICROGRAMS/0.3ML
  6. FUROSEMIDE [Concomitant]
     Dosage: 40 MG, UNK
  7. ATORVASTATIN [Concomitant]
     Indication: HYPERLIPIDAEMIA
     Dosage: 40 MG, UNK
     Route: 048
     Dates: end: 20121218

REACTIONS (4)
  - Jaundice cholestatic [Recovering/Resolving]
  - Liver disorder [Recovering/Resolving]
  - Oedema peripheral [Recovering/Resolving]
  - Dyspnoea [Recovering/Resolving]
